FAERS Safety Report 9198561 (Version 2)
Quarter: 2013Q2

REPORT INFORMATION
  Report Type: Spontaneous
  Country: IT (occurrence: IT)
  Receive Date: 20130329
  Receipt Date: 20130624
  Transmission Date: 20140414
  Serious: Yes (Hospitalization)
  Sender: FDA-Public Use
  Company Number: IT-ELI_LILLY_AND_COMPANY-IT201303007035

PATIENT
  Age: 30 Year
  Sex: Male

DRUGS (5)
  1. HUMALOG LISPRO [Suspect]
     Indication: DIABETES MELLITUS
     Dosage: UNK, UNKNOWN
  2. HUMALOG LISPRO [Suspect]
     Dosage: 35 IU, SINGLE
     Route: 058
     Dates: start: 20130306, end: 20130306
  3. HUMALOG LISPRO [Suspect]
     Dosage: UNK, UNKNOWN
  4. LANTUS [Concomitant]
     Dosage: 16 IU, EACH EVENING
  5. ALCOHOL [Concomitant]
     Dosage: UNK, UNKNOWN

REACTIONS (5)
  - Hypoglycaemia [Recovering/Resolving]
  - Malaise [Recovering/Resolving]
  - Accidental overdose [Recovered/Resolved]
  - Alcohol poisoning [Unknown]
  - Blood potassium decreased [Unknown]
